FAERS Safety Report 12721950 (Version 1)
Quarter: 2016Q3

REPORT INFORMATION
  Report Type: Spontaneous
  Country: US (occurrence: US)
  Receive Date: 20160907
  Receipt Date: 20160907
  Transmission Date: 20161109
  Serious: Yes (Death)
  Sender: FDA-Public Use
  Company Number: US-ELI_LILLY_AND_COMPANY-US201608013187

PATIENT
  Sex: Male

DRUGS (3)
  1. RIFAXIMIN [Concomitant]
     Active Substance: RIFAXIMIN
  2. GEMZAR [Suspect]
     Active Substance: GEMCITABINE HYDROCHLORIDE
     Indication: BREAST CANCER
     Dosage: 1500 MG, CYCLICAL
     Route: 042
     Dates: start: 20151012, end: 20160602
  3. CARBOPLATIN. [Concomitant]
     Active Substance: CARBOPLATIN
     Indication: BREAST CANCER METASTATIC
     Dosage: UNK
     Dates: start: 20151012

REACTIONS (6)
  - Renal failure [Fatal]
  - Coagulopathy [Fatal]
  - Hepatic failure [Fatal]
  - Encephalopathy [Fatal]
  - Hepatorenal syndrome [Fatal]
  - Toxicity to various agents [Fatal]
